FAERS Safety Report 12919191 (Version 3)
Quarter: 2019Q1

REPORT INFORMATION
  Report Type: Report from Study
  Country: GB (occurrence: GB)
  Receive Date: 20161108
  Receipt Date: 20190315
  Transmission Date: 20190417
  Serious: Yes (Hospitalization, Other)
  Sender: FDA-Public Use
  Company Number: GB-BRISTOL-MYERS SQUIBB COMPANY-BMS-2016-090385

PATIENT
  Age: 77 Year
  Sex: Male

DRUGS (1)
  1. ABATACEPT [Suspect]
     Active Substance: ABATACEPT
     Indication: RHEUMATOID ARTHRITIS
     Dosage: 125 MG, QWK
     Route: 058
     Dates: start: 20141218, end: 20161019

REACTIONS (10)
  - Cholelithiasis [Unknown]
  - Hernia [Unknown]
  - Large intestine polyp [Unknown]
  - Nasal mucosal disorder [Unknown]
  - Barrett^s oesophagus [Unknown]
  - Gastric mucosa erythema [Unknown]
  - Diverticulum intestinal [Unknown]
  - Erosive duodenitis [Unknown]
  - Gastrooesophageal reflux disease [Unknown]
  - Lung adenocarcinoma [Not Recovered/Not Resolved]

NARRATIVE: CASE EVENT DATE: 20160825
